FAERS Safety Report 24023952 (Version 6)
Quarter: 2024Q3

REPORT INFORMATION
  Report Type: Report from Study
  Country: TR (occurrence: TR)
  Receive Date: 20240627
  Receipt Date: 20240710
  Transmission Date: 20241017
  Serious: No
  Sender: ROCHE
  Company Number: TR-ROCHE-3528507

PATIENT
  Age: 59 Year
  Sex: Female
  Weight: 58.2 kg

DRUGS (16)
  1. ALECTINIB [Suspect]
     Active Substance: ALECTINIB
     Indication: Non-small cell lung cancer metastatic
     Route: 048
     Dates: start: 20221013
  2. ARAVA [Concomitant]
     Active Substance: LEFLUNOMIDE
     Indication: Rheumatoid arthritis
     Route: 048
     Dates: start: 20201010
  3. DELTACORTRIL [Concomitant]
     Active Substance: PREDNISOLONE
     Indication: Rheumatoid arthritis
     Route: 048
     Dates: start: 20220710
  4. PANTACTIVE [Concomitant]
     Indication: Rheumatoid arthritis
     Route: 048
     Dates: start: 20231031
  5. CITOL (TURKEY) [Concomitant]
     Indication: Rheumatoid arthritis
     Route: 048
     Dates: start: 20221107
  6. PIPERACILLIN SODIUM\TAZOBACTAM SODIUM [Concomitant]
     Active Substance: PIPERACILLIN SODIUM\TAZOBACTAM SODIUM
     Indication: Pneumonia
     Route: 042
     Dates: start: 20240302, end: 20240306
  7. MAGNESIUM SULFATE [Concomitant]
     Active Substance: MAGNESIUM SULFATE\MAGNESIUM SULFATE HEPTAHYDRATE
     Indication: Pneumonia
     Route: 042
     Dates: start: 20240303, end: 20240303
  8. ACETYLCYSTEINE [Concomitant]
     Active Substance: ACETYLCYSTEINE
     Route: 042
     Dates: start: 20240303, end: 20240307
  9. ENOX 4000 ANTI-XA [Concomitant]
     Indication: Pneumonia
     Route: 050
     Dates: start: 20240302, end: 20240306
  10. PAROL [Concomitant]
     Active Substance: ACETAMINOPHEN
     Indication: Pneumonia
     Route: 050
     Dates: start: 20240305, end: 20240307
  11. METHYLPREDNISOLONE [Concomitant]
     Active Substance: METHYLPREDNISOLONE
     Route: 048
     Dates: start: 20240425
  12. PANTO (TURKEY) [Concomitant]
     Indication: Pneumonia
     Route: 048
     Dates: start: 20240425
  13. BACTRIM [Concomitant]
     Active Substance: SULFAMETHOXAZOLE\TRIMETHOPRIM
     Indication: Pneumonia
     Route: 048
     Dates: start: 20240425
  14. DIAFURYL FORT [Concomitant]
     Indication: Pneumonia
     Route: 048
     Dates: start: 20240417, end: 20240421
  15. PROTINUM [Concomitant]
     Indication: Pneumonia
     Route: 048
     Dates: start: 20240417
  16. FLAGYL [Concomitant]
     Active Substance: METRONIDAZOLE\METRONIDAZOLE HYDROCHLORIDE
     Indication: Pneumonia
     Route: 048
     Dates: start: 20240417, end: 20240427

REACTIONS (1)
  - Diarrhoea [Not Recovered/Not Resolved]

NARRATIVE: CASE EVENT DATE: 20231012
